FAERS Safety Report 9400781 (Version 1)
Quarter: 2013Q3

REPORT INFORMATION
  Report Type: Spontaneous
  Country: FR (occurrence: FR)
  Receive Date: 20130715
  Receipt Date: 20130715
  Transmission Date: 20140515
  Serious: Yes (Other)
  Sender: FDA-Public Use
  Company Number: FR-PFIZER INC-2013207015

PATIENT
  Age: 39 Year
  Sex: Female

DRUGS (3)
  1. XANAX [Suspect]
     Indication: DEPRESSION
     Dosage: 4 DF (2MG) PER DAY
  2. PROZAC [Suspect]
     Indication: DEPRESSION
     Dosage: 1 DF IN MORNING AND AT LUNCH
  3. NORMISON [Suspect]
     Indication: DEPRESSION
     Dosage: 1 TABLET AT BEDTIME

REACTIONS (1)
  - Renal colic [Unknown]
